FAERS Safety Report 5153802-0 (Version None)
Quarter: 2006Q4

REPORT INFORMATION
  Report Type: 
  Country: None (occurrence: None)
  Receive Date: 20061120
  Receipt Date: 20061108
  Transmission Date: 20070319
  Serious: Yes (Other)
  Sender: FDA-Public Use
  Company Number: PHBS2006JP17476

PATIENT
  Age: 36 Year
  Sex: Female

DRUGS (2)
  1. AREDIA [Suspect]
     Route: 042
     Dates: start: 20050801, end: 20060501
  2. TAXOTERE [Concomitant]
     Route: 065
     Dates: start: 20050801, end: 20060501

REACTIONS (1)
  - OSTEONECROSIS [None]
